FAERS Safety Report 7837456-8 (Version None)
Quarter: 2011Q4

REPORT INFORMATION
  Report Type: 
  Country: None (occurrence: None)
  Receive Date: 20111024
  Receipt Date: 20110921
  Transmission Date: 20120403
  Serious: No
  Sender: FDA-Public Use
  Company Number: US-ABBOTT-11P-163-0857386-00

PATIENT
  Sex: Female
  Weight: 49.94 kg

DRUGS (2)
  1. LUPRON DEPOT [Suspect]
     Indication: ENDOMETRIOSIS
     Route: 030
     Dates: start: 20110701
  2. NORETHINDRONE [Concomitant]
     Indication: PRODUCT USED FOR UNKNOWN INDICATION

REACTIONS (11)
  - TORTICOLLIS [None]
  - NIGHT SWEATS [None]
  - PAIN IN EXTREMITY [None]
  - HYPOAESTHESIA [None]
  - INJECTION SITE PAIN [None]
  - MUSCLE SPASMS [None]
  - MIGRAINE [None]
  - BONE PAIN [None]
  - BACK PAIN [None]
  - DEHYDRATION [None]
  - HOT FLUSH [None]
